FAERS Safety Report 22007955 (Version 1)
Quarter: 2023Q1

REPORT INFORMATION
  Report Type: Spontaneous
  Country: CH (occurrence: CH)
  Receive Date: 20230218
  Receipt Date: 20230218
  Transmission Date: 20230417
  Serious: Yes (Hospitalization)
  Sender: FDA-Public Use
  Company Number: CH-AMGEN-CHESP2023023512

PATIENT
  Age: 84 Year
  Sex: Female
  Weight: 48 kg

DRUGS (1)
  1. PROLIA [Suspect]
     Active Substance: DENOSUMAB
     Indication: Osteoporosis
     Dosage: 60 MILLIGRAM, Q6MO, START DATE : NOT SPECIFIED (AT LEAST SINCE MAY/2022)
     Route: 058

REACTIONS (1)
  - Osteitis [Unknown]

NARRATIVE: CASE EVENT DATE: 20220910
